FAERS Safety Report 21392750 (Version 2)
Quarter: 2022Q4

REPORT INFORMATION
  Report Type: Spontaneous
  Country: US (occurrence: US)
  Receive Date: 20220929
  Receipt Date: 20221025
  Transmission Date: 20230112
  Serious: No
  Sender: FDA-Public Use
  Company Number: US-Merz Pharmaceuticals GmbH-22-02724

PATIENT
  Age: 35 Year
  Sex: Female

DRUGS (4)
  1. XEOMIN [Suspect]
     Active Substance: INCOBOTULINUMTOXINA
     Indication: Skin wrinkling
     Route: 030
     Dates: start: 20220912, end: 20220912
  2. XEOMIN [Suspect]
     Active Substance: INCOBOTULINUMTOXINA
     Indication: Skin cosmetic procedure
  3. XEOMIN [Suspect]
     Active Substance: INCOBOTULINUMTOXINA
     Indication: Skin wrinkling
  4. XEOMIN [Suspect]
     Active Substance: INCOBOTULINUMTOXINA
     Indication: Skin cosmetic procedure

REACTIONS (4)
  - Injection site swelling [Recovered/Resolved]
  - Injection site urticaria [Recovered/Resolved]
  - Injection site pain [Recovered/Resolved]
  - Off label use [Unknown]

NARRATIVE: CASE EVENT DATE: 20220901
